FAERS Safety Report 5831427-9 (Version None)
Quarter: 2008Q3

REPORT INFORMATION
  Report Type: 
  Country: None (occurrence: None)
  Receive Date: 20080801
  Receipt Date: 20080728
  Transmission Date: 20090109
  Serious: Yes (Hospitalization)
  Sender: FDA-Public Use
  Company Number: US-AMGEN-US297627

PATIENT
  Sex: Male
  Weight: 80 kg

DRUGS (16)
  1. PANITUMUMAB [Suspect]
     Indication: SQUAMOUS CELL CARCINOMA
     Route: 042
     Dates: start: 20080709, end: 20080713
  2. CISPLATIN [Suspect]
     Route: 065
  3. FLUOROURACIL [Suspect]
     Route: 065
  4. DOCETAXEL [Suspect]
     Route: 065
  5. ASPIRIN [Concomitant]
     Route: 065
  6. CLINDAMYCIN PHOSPHATE [Concomitant]
     Route: 065
  7. DECADRON [Concomitant]
     Route: 065
  8. LEVAQUIN [Concomitant]
     Route: 065
  9. LEXAPRO [Concomitant]
     Route: 065
  10. LIPITOR [Concomitant]
     Route: 065
  11. MINOCIN [Concomitant]
     Route: 065
  12. NEXIUM [Concomitant]
     Route: 065
  13. REGLAN [Concomitant]
     Route: 065
  14. SOTALOL HCL [Concomitant]
     Route: 065
  15. ZOFRAN [Concomitant]
     Route: 065
  16. ALKALOL [Concomitant]
     Route: 065

REACTIONS (1)
  - FEBRILE NEUTROPENIA [None]
